FAERS Safety Report 10687892 (Version 1)
Quarter: 2014Q4

REPORT INFORMATION
  Report Type: Report from Study
  Country: JP (occurrence: None)
  Receive Date: 20141230
  Receipt Date: 20141230
  Transmission Date: 20150529
  Serious: Yes (Other)
  Sender: FDA-Public Use
  Company Number: 2010JP006145

PATIENT
  Age: 72 Year
  Sex: Female
  Weight: 63 kg

DRUGS (18)
  1. ALFAROL [Concomitant]
     Active Substance: ALFACALCIDOL
  2. MUCOSTA (REBAMIPIDE) [Concomitant]
  3. PROTECADIN (LAFUTIDINE) [Concomitant]
  4. GASMOTIN (MOSAPRIDE CITRATE) [Concomitant]
     Active Substance: MOSAPRIDE CITRATE
  5. LENDORMIN (BROTIZOLAM) TABLET [Concomitant]
     Active Substance: BROTIZOLAM
  6. BERIZYM (CELLULASE, DIASTASE, LIPASE, PANCREATIN) [Concomitant]
  7. TACROLIMUS CAPSULES (TACROLIMUS) CAPSULE [Suspect]
     Active Substance: TACROLIMUS
     Indication: LUPUS NEPHRITIS
     Route: 048
     Dates: start: 20071217
  8. PREDONINE [Suspect]
     Active Substance: PREDNISOLONE\PREDNISOLONE ACETATE\PREDNISOLONE SODIUM SUCCINATE
     Indication: LUPUS NEPHRITIS
     Route: 048
  9. HOKUNALIN /00654902/ (TULOBUTEROL HYDROCHLORIDE) [Concomitant]
  10. LIVALO (ITAVASTATIN CALCIUM) [Concomitant]
  11. MUCODYNE (CARBOCISTEINE) [Concomitant]
     Active Substance: CARBOCYSTEINE
  12. GASCON (DIMETICONE) [Concomitant]
  13. BONALON (ALENDRONATE SODIUM) [Concomitant]
  14. CRAVIT (LEVOFLOXACIN) EYE DROPS, 0.5% [Concomitant]
     Active Substance: LEVOFLOXACIN
  15. DASEN (SERRAPEPTASE) [Concomitant]
  16. BAYASPIRIN (ACETYLSALICYLIC ACID) (ACETYLSALICYLIC ACID) [Concomitant]
     Active Substance: ASPIRIN
  17. ELCITONIN (ELCATONIN) [Concomitant]
  18. MEDICON /00048102/ (DEXTROMETHORPHAN HYDROCBROMIDE) [Concomitant]

REACTIONS (11)
  - Back pain [None]
  - Upper respiratory tract inflammation [None]
  - Bronchitis [None]
  - Conjunctivitis [None]
  - Pharyngitis [None]
  - Fibrous histiocytoma [None]
  - Seborrhoeic keratosis [None]
  - Headache [None]
  - Cataract [None]
  - Postural tremor [None]
  - Dizziness [None]

NARRATIVE: CASE EVENT DATE: 20080121
